FAERS Safety Report 24406381 (Version 1)
Quarter: 2024Q4

REPORT INFORMATION
  Report Type: Spontaneous
  Country: US (occurrence: US)
  Receive Date: 20241007
  Receipt Date: 20241007
  Transmission Date: 20250115
  Serious: No
  Sender: MERCK
  Company Number: US-009507513-2409USA009073

PATIENT
  Sex: Female
  Weight: 61.2 kg

DRUGS (11)
  1. WINREVAIR [Suspect]
     Active Substance: SOTATERCEPT-CSRK
     Indication: Product used for unknown indication
     Dosage: UNK
     Route: 058
  2. REMODULIN [Suspect]
     Active Substance: TREPROSTINIL
     Indication: Pulmonary arterial hypertension
     Dosage: 0.07 MICROGRAM PER KILOGRAM; FREQUENCY: CONTINUOUS
     Route: 058
     Dates: start: 20170720
  3. GINGER [Concomitant]
     Active Substance: GINGER
  4. OPSUMIT [Concomitant]
     Active Substance: MACITENTAN
  5. DOCONEXENT\ICOSAPENT [Concomitant]
     Active Substance: DOCONEXENT\ICOSAPENT
  6. VITAMINS [Concomitant]
     Active Substance: VITAMINS
  7. ERGOCALCIFEROL [Concomitant]
     Active Substance: ERGOCALCIFEROL
  8. ADCIRCA [Concomitant]
     Active Substance: TADALAFIL
  9. VITAMIN E [Concomitant]
     Active Substance: .ALPHA.-TOCOPHEROL
  10. GARLIC [Concomitant]
     Active Substance: GARLIC
  11. FERROUS SULFATE [Concomitant]
     Active Substance: FERROUS SULFATE

REACTIONS (2)
  - Weight increased [Unknown]
  - Lack of satiety [Unknown]
